FAERS Safety Report 14148572 (Version 1)
Quarter: 2017Q4

REPORT INFORMATION
  Report Type: Spontaneous
  Country: US (occurrence: US)
  Receive Date: 20171101
  Receipt Date: 20171101
  Transmission Date: 20180321
  Serious: Yes (Hospitalization, Other)
  Sender: FDA-Public Use
  Company Number: US-APOTEX-2017AP020395

PATIENT
  Age: 69 Year
  Sex: Female
  Weight: 113 kg

DRUGS (12)
  1. TOBRAMYCIN. [Suspect]
     Active Substance: TOBRAMYCIN
     Indication: OSTEOMYELITIS
     Dosage: 3.6 G, UNK MIXED WITH BIOMET CEMENT
     Route: 065
  2. VANCOMYCIN [Suspect]
     Active Substance: VANCOMYCIN
     Dosage: 4 G, UNK
     Route: 065
  3. LISINOPRIL. [Suspect]
     Active Substance: LISINOPRIL
     Indication: HYPERTENSION
     Dosage: UNK
     Route: 065
  4. PIPERACILLIN AND TAZOBACTAM [Suspect]
     Active Substance: PIPERACILLIN SODIUM\TAZOBACTAM SODIUM
     Indication: OSTEOMYELITIS
     Dosage: UNK
     Route: 042
  5. VANCOMYCIN [Suspect]
     Active Substance: VANCOMYCIN
     Dosage: 750 MG, Q.H.
     Route: 065
  6. RIFAMPIN. [Concomitant]
     Active Substance: RIFAMPIN
     Indication: OSTEOMYELITIS
     Dosage: UNK
     Route: 065
  7. VANCOMYCIN [Suspect]
     Active Substance: VANCOMYCIN
     Dosage: 12 G, UNK
     Route: 065
  8. CEPHALEXIN                         /00145501/ [Concomitant]
     Active Substance: CEPHALEXIN
     Indication: ASPIRATION JOINT
     Dosage: UNK
     Route: 065
  9. TOBRAMYCIN. [Suspect]
     Active Substance: TOBRAMYCIN
     Dosage: 10.8 G, UNK
     Route: 065
  10. VANCOMYCIN [Suspect]
     Active Substance: VANCOMYCIN
     Indication: OSTEOMYELITIS
     Dosage: 1 G, Q.H.
     Route: 065
  11. SODIUM CHLORIDE. [Concomitant]
     Active Substance: SODIUM CHLORIDE
     Indication: FLUID REPLACEMENT
     Dosage: UNK
     Route: 065
  12. VANCOMYCIN [Suspect]
     Active Substance: VANCOMYCIN
     Dosage: 1 G, UNK
     Route: 065

REACTIONS (3)
  - Antibiotic level above therapeutic [Unknown]
  - Renal tubular necrosis [Recovering/Resolving]
  - Acute kidney injury [Recovering/Resolving]
